FAERS Safety Report 13156503 (Version 3)
Quarter: 2017Q1

REPORT INFORMATION
  Report Type: Spontaneous
  Country: AU (occurrence: AU)
  Receive Date: 20170126
  Receipt Date: 20170227
  Transmission Date: 20170428
  Serious: Yes (Other)
  Sender: FDA-Public Use
  Company Number: AU-BAXALTA-2017BLT000385

PATIENT
  Age: 12 Month
  Sex: Male

DRUGS (13)
  1. BIOSTATE [Suspect]
     Active Substance: ANTIHEMOPHILIC FACTOR HUMAN\VON WILLEBRAND FACTOR HUMAN
     Indication: PROPHYLAXIS
     Dosage: 2000 IU, 1X A DAY
     Route: 042
     Dates: start: 20161213
  2. BIOSTATE [Suspect]
     Active Substance: ANTIHEMOPHILIC FACTOR HUMAN\VON WILLEBRAND FACTOR HUMAN
     Dosage: REGIMEN #5
     Route: 042
  3. BIOSTATE [Suspect]
     Active Substance: ANTIHEMOPHILIC FACTOR HUMAN\VON WILLEBRAND FACTOR HUMAN
     Dosage: REGIMEN #4
     Route: 042
  4. BIOSTATE [Suspect]
     Active Substance: ANTIHEMOPHILIC FACTOR HUMAN\VON WILLEBRAND FACTOR HUMAN
     Dosage: REGIMEN #2
     Route: 042
  5. ADVATE [Concomitant]
     Active Substance: ANTIHEMOPHILIC FACTOR, HUMAN RECOMBINANT
     Indication: HAEMOPHILIA A WITH ANTI FACTOR VIII
     Dosage: 2000 IU, 1X A DAY
     Route: 042
     Dates: start: 20161121, end: 20161205
  6. BIOSTATE [Suspect]
     Active Substance: ANTIHEMOPHILIC FACTOR HUMAN\VON WILLEBRAND FACTOR HUMAN
     Dosage: REGIMEN #3
     Route: 042
  7. BIOSTATE [Suspect]
     Active Substance: ANTIHEMOPHILIC FACTOR HUMAN\VON WILLEBRAND FACTOR HUMAN
     Dosage: 2000 IU, 1X A DAY REGIMEN #1
     Route: 042
     Dates: start: 20161205, end: 20161209
  8. FEIBA NF [Suspect]
     Active Substance: ANTI-INHIBITOR COAGULANT COMPLEX
     Dosage: 1000 IU, EVERY 2 DY
     Route: 042
     Dates: start: 20170110
  9. BIOSTATE [Suspect]
     Active Substance: ANTIHEMOPHILIC FACTOR HUMAN\VON WILLEBRAND FACTOR HUMAN
     Indication: FACTOR VIII DEFICIENCY
     Dosage: 1000 IU, 1X A DAY
     Route: 065
     Dates: start: 20161210, end: 20161212
  10. FEIBA NF [Suspect]
     Active Substance: ANTI-INHIBITOR COAGULANT COMPLEX
     Indication: PROPHYLAXIS
     Dosage: 1000 IU, 1X A DAY
     Route: 042
     Dates: start: 201612
  11. FEIBA NF [Suspect]
     Active Substance: ANTI-INHIBITOR COAGULANT COMPLEX
     Dosage: 1000 IU, CONTINUOUS
     Route: 042
     Dates: start: 20161207, end: 20161209
  12. FACTOR VIIA, RECOMBINANT [Concomitant]
     Active Substance: COAGULATION FACTOR VIIA RECOMBINANT HUMAN
     Indication: PRODUCT USED FOR UNKNOWN INDICATION
  13. PANADOL [Concomitant]
     Active Substance: ACETAMINOPHEN
     Indication: PRODUCT USED FOR UNKNOWN INDICATION

REACTIONS (2)
  - Pyrexia [Unknown]
  - Haemolytic anaemia [Unknown]

NARRATIVE: CASE EVENT DATE: 20161207
